FAERS Safety Report 9720905 (Version 1)
Quarter: 2013Q4

REPORT INFORMATION
  Report Type: Spontaneous
  Country: GB (occurrence: GB)
  Receive Date: 20131129
  Receipt Date: 20131129
  Transmission Date: 20140711
  Serious: Yes (Hospitalization)
  Sender: FDA-Public Use
  Company Number: GB-JNJFOC-20131118209

PATIENT
  Age: 65 Year
  Sex: Female

DRUGS (2)
  1. TRAMADOL HYDROCHLORIDE [Suspect]
     Indication: ABDOMINAL PAIN
     Route: 048
     Dates: start: 20131104, end: 20131106
  2. WARFARIN [Interacting]
     Indication: ATRIAL FIBRILLATION
     Route: 065

REACTIONS (2)
  - Drug interaction [Recovering/Resolving]
  - International normalised ratio increased [Recovering/Resolving]
